FAERS Safety Report 9243141 (Version 2)
Quarter: 2013Q2

REPORT INFORMATION
  Report Type: Spontaneous
  Country: US (occurrence: US)
  Receive Date: 20130419
  Receipt Date: 20130513
  Transmission Date: 20140414
  Serious: No
  Sender: FDA-Public Use
  Company Number: US-ASTRAZENECA-2013SE22245

PATIENT
  Age: 623 Month
  Sex: Male
  Weight: 115.2 kg

DRUGS (2)
  1. PULMICORT FLEXHALER [Suspect]
     Indication: ASTHMA
     Dosage: 180 MCG 4 PUFFS PER DAY
     Route: 055
     Dates: start: 201211
  2. UNSPECIFIED MEDICATIONS [Concomitant]

REACTIONS (1)
  - Asthma [Unknown]
